FAERS Safety Report 9314259 (Version 2)
Quarter: 2013Q3

REPORT INFORMATION
  Report Type: Report from Study
  Country: CA (occurrence: CA)
  Receive Date: 20130529
  Receipt Date: 20130816
  Transmission Date: 20140515
  Serious: Yes (Death)
  Sender: FDA-Public Use
  Company Number: PHHY2012CA083690

PATIENT
  Age: 66 Year
  Sex: Male

DRUGS (2)
  1. CLOZARIL [Suspect]
     Indication: SCHIZOPHRENIA
     Dosage: UNK
     Route: 048
     Dates: start: 20060215
  2. CLOZARIL [Suspect]
     Dosage: 200 MG, (175 MG AT 20.00 P.M. AND 25 MG AT 08.00 A.M.)
     Route: 048
     Dates: start: 20070724

REACTIONS (3)
  - Pneumonia aspiration [Fatal]
  - Influenza [Unknown]
  - International normalised ratio increased [Unknown]
